FAERS Safety Report 19473960 (Version 1)
Quarter: 2021Q2

REPORT INFORMATION
  Report Type: Spontaneous
  Country: US (occurrence: US)
  Receive Date: 20210629
  Receipt Date: 20210629
  Transmission Date: 20210717
  Serious: Yes (Other)
  Sender: FDA-Public Use
  Company Number: US-PFIZER INC-2021739642

PATIENT
  Sex: Female
  Weight: 53.52 kg

DRUGS (1)
  1. LIOTHYRONINE SODIUM. [Suspect]
     Active Substance: LIOTHYRONINE SODIUM
     Indication: HYPOTHYROIDISM
     Dosage: UNK

REACTIONS (5)
  - Drug ineffective [Unknown]
  - Palpitations [Unknown]
  - Dry skin [Unknown]
  - Feeling cold [Unknown]
  - Cardiac flutter [Unknown]
